FAERS Safety Report 6564540-1 (Version None)
Quarter: 2010Q1

REPORT INFORMATION
  Report Type: 
  Country: None (occurrence: None)
  Receive Date: 20100201
  Receipt Date: 20100118
  Transmission Date: 20100710
  Serious: Yes (Other)
  Sender: FDA-Public Use
  Company Number: PHHY2010TW02453

PATIENT
  Sex: Female
  Weight: 62.5 kg

DRUGS (4)
  1. ZOLEDRONATE T29581++BM [Suspect]
     Indication: METASTASES TO BONE
     Dosage: 400 MG EVERY 4 WEEKS
     Route: 042
     Dates: start: 20090302, end: 20100104
  2. MELOXICAM [Concomitant]
     Indication: NEURALGIA
     Dosage: 7.5 MG PER DAY
     Dates: start: 20090720
  3. CLONAZEPAM [Concomitant]
     Indication: PARKINSONISM
     Dosage: 0.5 MG PER DAY
     Dates: start: 20091012
  4. LEVODOPA [Concomitant]
     Indication: PARKINSONISM
     Dosage: 750 MG PER DAY
     Dates: start: 20090720

REACTIONS (2)
  - BREAST CANCER [None]
  - BREAST OPERATION [None]
